FAERS Safety Report 5391823-3 (Version None)
Quarter: 2007Q3

REPORT INFORMATION
  Report Type: 
  Country: None (occurrence: None)
  Receive Date: 20070718
  Receipt Date: 20070709
  Transmission Date: 20080115
  Serious: Yes (Death)
  Sender: FDA-Public Use
  Company Number: B0478870A

PATIENT
  Age: 14 Year
  Sex: Male

DRUGS (1)
  1. ASPIRIN [Suspect]
     Indication: VIRAL INFECTION
     Dosage: ORAL
     Route: 048

REACTIONS (2)
  - HAEMODIALYSIS [None]
  - REYE'S SYNDROME [None]
